FAERS Safety Report 23797064 (Version 2)
Quarter: 2024Q2

REPORT INFORMATION
  Report Type: Report from Study
  Country: US (occurrence: US)
  Receive Date: 20240430
  Receipt Date: 20240521
  Transmission Date: 20240716
  Serious: Yes (Other)
  Sender: FDA-Public Use
  Company Number: US-ABBVIE-5736101

PATIENT
  Sex: Male

DRUGS (1)
  1. RINVOQ [Suspect]
     Active Substance: UPADACITINIB
     Indication: Crohn^s disease
     Route: 048
     Dates: start: 20231130

REACTIONS (4)
  - Surgery [Recovering/Resolving]
  - Abdominal distension [Recovering/Resolving]
  - Unevaluable event [Recovering/Resolving]
  - Malaise [Unknown]
